FAERS Safety Report 8128650 (Version 2)
Quarter: 2013Q1

REPORT INFORMATION
  Report Type: Report from Study
  Country: DK (occurrence: DK)
  Receive Date: 20110909
  Receipt Date: 20130306
  Transmission Date: 20140127
  Serious: Yes (Hospitalization)
  Sender: FDA-Public Use
  Company Number: PHHO2011DK13930

PATIENT
  Age: 77 Year
  Sex: Female
  Weight: 35 kg

DRUGS (2)
  1. CGS 20267 [Suspect]
     Indication: BREAST CANCER
     Dosage: 2.5 MG, QD
     Route: 048
     Dates: start: 20071217
  2. SERETIDE DISKUS [Concomitant]
     Indication: CHRONIC OBSTRUCTIVE PULMONARY DISEASE
     Dosage: 50/250 GG X 2
     Dates: start: 20040607

REACTIONS (2)
  - Arthralgia [Recovered/Resolved]
  - Chronic obstructive pulmonary disease [Recovered/Resolved]
